FAERS Safety Report 23709651 (Version 3)
Quarter: 2024Q2

REPORT INFORMATION
  Report Type: Spontaneous
  Country: US (occurrence: US)
  Receive Date: 20240404
  Receipt Date: 20240513
  Transmission Date: 20240716
  Serious: No
  Sender: FDA-Public Use
  Company Number: US-BAUSCH-BL-2024-005195

PATIENT
  Age: 62 Year
  Sex: Male

DRUGS (1)
  1. TRULANCE [Suspect]
     Active Substance: PLECANATIDE
     Indication: Irritable bowel syndrome
     Dosage: DAILY, IN THE MORNING
     Route: 048

REACTIONS (2)
  - Therapeutic product effect decreased [Unknown]
  - Product storage error [Unknown]
